FAERS Safety Report 8797065 (Version 2)
Quarter: 2015Q1

REPORT INFORMATION
  Report Type: Report from Study
  Country: US (occurrence: US)
  Receive Date: 20120919
  Receipt Date: 20150227
  Transmission Date: 20150721
  Serious: Yes (Death)
  Sender: FDA-Public Use
  Company Number: US-ROCHE-1102897

PATIENT
  Sex: Male

DRUGS (9)
  1. AVASTIN [Suspect]
     Active Substance: BEVACIZUMAB
     Indication: HAEMATOLOGICAL MALIGNANCY
     Route: 042
  2. ZOLEDRONIC ACID [Concomitant]
     Active Substance: ZOLEDRONIC ACID
     Route: 042
  3. ONDANSETRON [Concomitant]
     Active Substance: ONDANSETRON
  4. ACETAMINOPHEN. [Concomitant]
     Active Substance: ACETAMINOPHEN
     Route: 048
  5. AVASTIN [Suspect]
     Active Substance: BEVACIZUMAB
     Indication: RENAL CANCER
     Route: 042
  6. AVASTIN [Suspect]
     Active Substance: BEVACIZUMAB
     Route: 042
  7. DIPHENHYDRAMINE [Concomitant]
     Active Substance: DIPHENHYDRAMINE
     Route: 048
  8. OXYCODONE [Concomitant]
     Active Substance: OXYCODONE
  9. HEPARIN [Concomitant]
     Active Substance: HEPARIN SODIUM
     Route: 042

REACTIONS (11)
  - Fatigue [Unknown]
  - Decreased appetite [Unknown]
  - Burning sensation [Unknown]
  - Vomiting [Unknown]
  - Death [Fatal]
  - Nausea [Unknown]
  - Cough [Unknown]
  - Musculoskeletal pain [Unknown]
  - Arthralgia [Unknown]
  - Off label use [Unknown]
  - Dyspnoea exertional [Unknown]
